FAERS Safety Report 23478077 (Version 1)
Quarter: 2024Q1

REPORT INFORMATION
  Report Type: Spontaneous
  Country: US (occurrence: US)
  Receive Date: 20240204
  Receipt Date: 20240204
  Transmission Date: 20240410
  Serious: Yes (Other)
  Sender: FDA-Public Use
  Company Number: US-STRIDES ARCOLAB LIMITED-2023SP018804

PATIENT
  Age: 7 Decade
  Sex: Female

DRUGS (18)
  1. TRIAMCINOLONE ACETONIDE [Suspect]
     Active Substance: TRIAMCINOLONE ACETONIDE
     Indication: Skin ulcer
     Dosage: UNK (CREAM)
     Route: 061
  2. TRIAMCINOLONE ACETONIDE [Suspect]
     Active Substance: TRIAMCINOLONE ACETONIDE
     Indication: Immune system disorder
  3. MINOCYCLINE [Suspect]
     Active Substance: MINOCYCLINE HYDROCHLORIDE
     Indication: Skin ulcer
     Dosage: 100 MILLIGRAM, BID
     Route: 065
  4. MINOCYCLINE [Suspect]
     Active Substance: MINOCYCLINE HYDROCHLORIDE
     Indication: Immune system disorder
  5. NYSTATIN [Suspect]
     Active Substance: NYSTATIN
     Indication: Skin ulcer
     Dosage: UNK
     Route: 061
  6. NYSTATIN [Suspect]
     Active Substance: NYSTATIN
     Indication: Immune system disorder
  7. FLUCONAZOLE [Suspect]
     Active Substance: FLUCONAZOLE
     Indication: Skin ulcer
     Dosage: 150 MILLIGRAM, QD
     Route: 048
  8. FLUCONAZOLE [Suspect]
     Active Substance: FLUCONAZOLE
     Indication: Immune system disorder
  9. ACITRETIN [Suspect]
     Active Substance: ACITRETIN
     Indication: Skin ulcer
     Dosage: 10 MILLIGRAM, QD
     Route: 065
  10. ACITRETIN [Suspect]
     Active Substance: ACITRETIN
     Indication: Immune system disorder
  11. MUPIROCIN [Suspect]
     Active Substance: MUPIROCIN
     Indication: Skin ulcer
     Dosage: UNK
     Route: 065
  12. MUPIROCIN [Suspect]
     Active Substance: MUPIROCIN
     Indication: Immune system disorder
  13. GENTAMICIN [Suspect]
     Active Substance: GENTAMICIN
     Indication: Skin ulcer
     Dosage: UNK
     Route: 065
  14. GENTAMICIN [Suspect]
     Active Substance: GENTAMICIN
     Indication: Immune system disorder
  15. CIPROFLOXACIN [Suspect]
     Active Substance: CIPROFLOXACIN
     Indication: Skin ulcer
     Dosage: 500 MILLIGRAM, BID
     Route: 065
  16. CIPROFLOXACIN [Suspect]
     Active Substance: CIPROFLOXACIN
     Indication: Immune system disorder
  17. GABAPENTIN [Suspect]
     Active Substance: GABAPENTIN
     Indication: Skin ulcer
     Dosage: 200 MILLIGRAM, QD
     Route: 065
  18. GABAPENTIN [Suspect]
     Active Substance: GABAPENTIN
     Indication: Immune system disorder

REACTIONS (2)
  - Therapy non-responder [Unknown]
  - Off label use [Unknown]
